FAERS Safety Report 10267428 (Version 1)
Quarter: 2014Q2

REPORT INFORMATION
  Report Type: Spontaneous
  Country: DK (occurrence: DK)
  Receive Date: 20140630
  Receipt Date: 20140630
  Transmission Date: 20141212
  Serious: Yes (Hospitalization)
  Sender: FDA-Public Use
  Company Number: DK-THROMBOGENICS INC-JET-2014-394

PATIENT
  Age: 58 Year
  Sex: Female

DRUGS (1)
  1. JETREA [Suspect]
     Indication: MACULAR HOLE
     Dosage: 0.1 ML, ONE TIME DOSE
     Route: 031
     Dates: start: 20130912, end: 20130912

REACTIONS (2)
  - Retinal detachment [Unknown]
  - Vitrectomy [Recovered/Resolved]
